FAERS Safety Report 6741267-4 (Version None)
Quarter: 2010Q2

REPORT INFORMATION
  Report Type: 
  Country: None (occurrence: None)
  Receive Date: 20100526
  Receipt Date: 20100526
  Transmission Date: 20101027
  Serious: Yes (Other)
  Sender: FDA-Public Use
  Company Number: None

PATIENT
  Age: 13 Month
  Sex: Female
  Weight: 9.9791 kg

DRUGS (2)
  1. CONCENTRATED TYLENOL INFANT DROPS [Suspect]
     Indication: PYREXIA
     Dosage: 1.2 ML EVERY 4-6 HOURS PO
     Route: 048
     Dates: start: 20100430, end: 20100501
  2. CONCENTRATED TYLENOL INFANT DROPS [Suspect]
     Indication: VIRAL INFECTION
     Dosage: 1.2 ML EVERY 4-6 HOURS PO
     Route: 048
     Dates: start: 20100430, end: 20100501

REACTIONS (4)
  - INCORRECT DOSE ADMINISTERED [None]
  - PRODUCT FORMULATION ISSUE [None]
  - PRODUCT QUALITY ISSUE [None]
  - RESPIRATORY RATE INCREASED [None]
